FAERS Safety Report 10032550 (Version 1)
Quarter: 2014Q1

REPORT INFORMATION
  Report Type: Spontaneous
  Country: US (occurrence: US)
  Receive Date: 20140324
  Receipt Date: 20140324
  Transmission Date: 20141002
  Serious: No
  Sender: FDA-Public Use
  Company Number: US-SHIONOGI, INC-2013000402

PATIENT
  Age: 69 Year
  Sex: Female

DRUGS (4)
  1. OSPHENA [Suspect]
     Indication: DYSPAREUNIA
     Dosage: QD IN THE MORNING
     Route: 065
     Dates: start: 20131031
  2. OSPHENA [Suspect]
     Indication: VULVOVAGINAL BURNING SENSATION
  3. NEXIUM                             /01479302/ [Concomitant]
     Indication: PRODUCT USED FOR UNKNOWN INDICATION
     Dosage: 40 MG, UNK
     Route: 065
  4. QUINAPRIL [Concomitant]
     Indication: PRODUCT USED FOR UNKNOWN INDICATION
     Dosage: 5 MG, UNK
     Route: 065

REACTIONS (1)
  - Vulvovaginal burning sensation [Not Recovered/Not Resolved]
